FAERS Safety Report 19184724 (Version 1)
Quarter: 2021Q2

REPORT INFORMATION
  Report Type: Spontaneous
  Country: US (occurrence: US)
  Receive Date: 20210427
  Receipt Date: 20210427
  Transmission Date: 20210717
  Serious: No
  Sender: FDA-Public Use
  Company Number: US-IPSEN BIOPHARMACEUTICALS, INC.-2021-10442

PATIENT
  Age: 13 Year
  Sex: Male

DRUGS (2)
  1. INCRELEX [Suspect]
     Active Substance: MECASERMIN
     Indication: OFF LABEL USE
  2. INCRELEX [Suspect]
     Active Substance: MECASERMIN
     Indication: BILIARY CIRRHOSIS
     Dosage: 0.08 MG/KG:
     Route: 058
     Dates: start: 202001

REACTIONS (3)
  - Blood testosterone increased [Not Recovered/Not Resolved]
  - Off label use [Unknown]
  - Drug effective for unapproved indication [Unknown]

NARRATIVE: CASE EVENT DATE: 202001
